FAERS Safety Report 5743991-9 (Version None)
Quarter: 2008Q2

REPORT INFORMATION
  Report Type: 
  Country: None (occurrence: None)
  Receive Date: 20080516
  Receipt Date: 20080507
  Transmission Date: 20081010
  Serious: Yes (Hospitalization)
  Sender: FDA-Public Use
  Company Number: 2008JP002160

PATIENT
  Age: 42 Year
  Sex: Male

DRUGS (3)
  1. PROGRAF [Suspect]
     Indication: BONE MARROW TRANSPLANT
     Dosage: 1.5 MG, /D, ORAL
     Route: 048
  2. PREDNISOLONE [Concomitant]
  3. PENTAZOCINE LACTATE [Concomitant]

REACTIONS (2)
  - GASTROINTESTINAL HYPOMOTILITY [None]
  - HERPES ZOSTER DISSEMINATED [None]
